FAERS Safety Report 8223929-5 (Version None)
Quarter: 2012Q1

REPORT INFORMATION
  Report Type: 
  Country: None (occurrence: None)
  Receive Date: 20120321
  Receipt Date: 20120315
  Transmission Date: 20120608
  Serious: Yes (Hospitalization, Other)
  Sender: FDA-Public Use
  Company Number: JP-PFIZER INC-2012062427

PATIENT
  Sex: Male

DRUGS (2)
  1. LYRICA [Suspect]
     Dosage: 25 MG, 3X/DAY
     Route: 048
  2. LYRICA [Suspect]
     Dosage: 75 MG, 1X/DAY
     Route: 048

REACTIONS (2)
  - DIZZINESS [None]
  - LUMBAR VERTEBRAL FRACTURE [None]
